FAERS Safety Report 9449759 (Version 1)
Quarter: 2013Q3

REPORT INFORMATION
  Report Type: Spontaneous
  Country: US (occurrence: US)
  Receive Date: 20130809
  Receipt Date: 20130809
  Transmission Date: 20140515
  Serious: Yes (Hospitalization, Other)
  Sender: FDA-Public Use
  Company Number: US-BAYER-2013-093539

PATIENT
  Age: 20 Year
  Sex: Female

DRUGS (22)
  1. YASMIN [Suspect]
     Indication: DYSFUNCTIONAL UTERINE BLEEDING
  2. YASMIN [Suspect]
     Indication: MENSTRUATION IRREGULAR
  3. DEPAKOTE [Concomitant]
     Dosage: 500 MG, BID
     Dates: start: 20050329
  4. IRON [Concomitant]
     Dosage: DAILY
     Dates: start: 20050329
  5. TRAZODONE [Concomitant]
     Dosage: 100 MG, BEDTIME
     Dates: start: 20050329
  6. NEURONTIN [Concomitant]
     Dosage: 5 MG, BID
     Dates: start: 20050329
  7. NAPROXEN [Concomitant]
     Indication: PAIN
     Dosage: 250 MG, EVERY 8 HOURS AS NEEDED
     Dates: start: 20050329
  8. PERCOCET [Concomitant]
     Dosage: UNK
     Dates: start: 20050301
  9. VALIUM [Concomitant]
     Dosage: UNK
     Dates: start: 20050301
  10. CEFOXITIN [Concomitant]
     Dosage: UNK
     Dates: start: 20041230
  11. DOXYCYCLINE [Concomitant]
     Dosage: UNK
     Dates: start: 20041231
  12. FLAGYL [Concomitant]
     Dosage: UNK
     Dates: start: 20041230
  13. TRAMADOL HYDROCHLORIDE [Concomitant]
  14. DIPHENHYDRAMIN [Concomitant]
  15. ONDANSETRON [Concomitant]
     Dosage: 4 MG, UNK
  16. HYDROMORPHONE [Concomitant]
     Dosage: 2 MG, UNK
  17. ACETAMINOPHEN W/HYDROCODONE [Concomitant]
     Dosage: 5-500, UNK
  18. NORETHIN [Concomitant]
  19. PROGESTERONE [Concomitant]
  20. VITAMIN K [Concomitant]
  21. BENADRYL [Concomitant]
  22. AYGESTIN [Concomitant]

REACTIONS (3)
  - Deep vein thrombosis [Recovered/Resolved]
  - Thrombophlebitis superficial [None]
  - Deep vein thrombosis [None]
